FAERS Safety Report 5256750-0 (Version None)
Quarter: 2007Q1

REPORT INFORMATION
  Report Type: 
  Country: None (occurrence: None)
  Receive Date: 20070306
  Receipt Date: 20070222
  Transmission Date: 20070707
  Serious: Yes (Disabling)
  Sender: FDA-Public Use
  Company Number: GB-PFIZER INC-2007014882

PATIENT
  Age: 49 Year
  Weight: 109 kg

DRUGS (5)
  1. VORICONAZOLE [Suspect]
     Indication: ASPERGILLOSIS
     Route: 048
     Dates: start: 20060501, end: 20070101
  2. AUGMENTIN '125' [Concomitant]
     Route: 048
  3. PREDNISOLONE [Concomitant]
     Route: 048
     Dates: start: 20060501
  4. SERETIDE [Concomitant]
     Route: 055
  5. VENTOLIN [Concomitant]
     Route: 055

REACTIONS (4)
  - BLOOD CREATINE PHOSPHOKINASE INCREASED [None]
  - ELECTROMYOGRAM ABNORMAL [None]
  - MYALGIA [None]
  - TENDON DISORDER [None]
